FAERS Safety Report 13906807 (Version 2)
Quarter: 2017Q4

REPORT INFORMATION
  Report Type: Spontaneous
  Country: JP (occurrence: JP)
  Receive Date: 20170825
  Receipt Date: 20171106
  Transmission Date: 20180320
  Serious: Yes (Hospitalization)
  Sender: FDA-Public Use
  Company Number: JP-BAYER-2017-162896

PATIENT

DRUGS (1)
  1. BETAFERON [Suspect]
     Active Substance: INTERFERON BETA-1B
     Route: 058

REACTIONS (4)
  - Pneumonia aspiration [Unknown]
  - Cardiac failure [Unknown]
  - Hypertension [Unknown]
  - Electrolyte imbalance [Unknown]
